FAERS Safety Report 23277353 (Version 4)
Quarter: 2024Q4

REPORT INFORMATION
  Report Type: Spontaneous
  Country: US (occurrence: US)
  Receive Date: 20231208
  Receipt Date: 20241029
  Transmission Date: 20250115
  Serious: Yes (Hospitalization, Other)
  Sender: PFIZER
  Company Number: US-PFIZER INC-2021168553

PATIENT
  Age: 76 Year
  Sex: Female

DRUGS (8)
  1. XELJANZ [Suspect]
     Active Substance: TOFACITINIB CITRATE
     Indication: Rheumatoid arthritis
     Dosage: UNK
     Route: 048
     Dates: start: 2018
  2. XELJANZ [Suspect]
     Active Substance: TOFACITINIB CITRATE
     Dosage: 5 MG
     Route: 048
     Dates: start: 201807
  3. XELJANZ [Suspect]
     Active Substance: TOFACITINIB CITRATE
     Dosage: 5 MG ONCE DAILY ON ODDS DAY AND 5 MG TWICE DAILY BY MOUTH ON EVEN DAYS
     Route: 048
     Dates: start: 201807
  4. XELJANZ [Suspect]
     Active Substance: TOFACITINIB CITRATE
     Dosage: 5 MG, 1X/DAY
     Route: 048
     Dates: start: 2020
  5. XELJANZ [Suspect]
     Active Substance: TOFACITINIB CITRATE
     Dosage: 5 MG ONE TABLET ONE DAY
     Route: 048
     Dates: start: 2023
  6. XELJANZ [Suspect]
     Active Substance: TOFACITINIB CITRATE
     Dosage: FOLLOWED BY XELJANZ 5 MG TWO TABLETS EVERY OTHER DAY
     Route: 048
     Dates: start: 2023
  7. XELJANZ [Suspect]
     Active Substance: TOFACITINIB CITRATE
     Dosage: 5MG ONCE DAILY ON ODD DAYS, 5MG TWICE DAILY ON EVEN DAYS
     Route: 048
     Dates: start: 202403
  8. XELJANZ [Suspect]
     Active Substance: TOFACITINIB CITRATE
     Dosage: 5MG ONCE DAILY ON ODD DAYS, 5MG TWICE DAILY ON EVEN DAYS
     Route: 048
     Dates: start: 202403

REACTIONS (3)
  - Colon cancer [Not Recovered/Not Resolved]
  - Drug ineffective [Unknown]
  - Off label use [Unknown]

NARRATIVE: CASE EVENT DATE: 20180101
